FAERS Safety Report 5239723-3 (Version None)
Quarter: 2007Q1

REPORT INFORMATION
  Report Type: 
  Country: None (occurrence: None)
  Receive Date: 20070216
  Receipt Date: 20070205
  Transmission Date: 20070707
  Serious: Yes (Other)
  Sender: FDA-Public Use
  Company Number: ES-ROCHE-481536

PATIENT
  Age: 45 Year
  Sex: Male

DRUGS (5)
  1. KETOROLAC TROMETHAMINE [Suspect]
     Indication: DRUG USE FOR UNKNOWN INDICATION
     Dosage: EVERY SIX HOURS.
     Route: 065
  2. POLY-PRED [Suspect]
     Indication: DRUG USE FOR UNKNOWN INDICATION
     Dosage: EVERY FOUR HOURS. EVERY 8 HOURS SEVEN DAYS LATER.
     Route: 061
  3. PREDNISONE TAB [Suspect]
     Indication: DRUG USE FOR UNKNOWN INDICATION
     Dosage: EVERY 24 HOURS.
     Route: 048
  4. PREDNISONE TAB [Suspect]
     Dosage: REDUCED TO 30 MG A DAY.
     Route: 048
  5. CYCLOPENTOLATE HCL [Concomitant]
     Indication: DRUG USE FOR UNKNOWN INDICATION
     Dosage: EVERY 8 HOURS.
     Route: 065

REACTIONS (1)
  - SKIN TOXICITY [None]
